FAERS Safety Report 4853354-6 (Version None)
Quarter: 2005Q4

REPORT INFORMATION
  Report Type: 
  Country: None (occurrence: None)
  Receive Date: 20051212
  Receipt Date: 20051123
  Transmission Date: 20060501
  Serious: Yes (Other)
  Sender: FDA-Public Use
  Company Number: US200511002952

PATIENT
  Sex: Female

DRUGS (3)
  1. EVISTA [Suspect]
     Indication: OSTEOPOROSIS
  2. ACTONEL [Concomitant]
  3. LIPITOR [Concomitant]

REACTIONS (4)
  - BREAST CYST [None]
  - DRUG INEFFECTIVE [None]
  - FIBROCYSTIC BREAST DISEASE [None]
  - UPPER LIMB FRACTURE [None]
